FAERS Safety Report 20206235 (Version 1)
Quarter: 2021Q4

REPORT INFORMATION
  Report Type: Spontaneous
  Country: MM (occurrence: MM)
  Receive Date: 20211220
  Receipt Date: 20211220
  Transmission Date: 20220303
  Serious: Yes (Death)
  Sender: FDA-Public Use
  Company Number: MM-JNJFOC-20211224383

PATIENT
  Age: 29 Year
  Sex: Male
  Weight: 36 kg

DRUGS (12)
  1. SIRTURO [Suspect]
     Active Substance: BEDAQUILINE FUMARATE
     Indication: Tuberculosis
     Dosage: FOR 2 WEEKS
     Route: 048
     Dates: start: 20211110
  2. SIRTURO [Suspect]
     Active Substance: BEDAQUILINE FUMARATE
     Dosage: 3 DAYS PER WEEK
     Route: 065
     Dates: end: 20211204
  3. LINEZOLID [Suspect]
     Active Substance: LINEZOLID
     Indication: Tuberculosis
     Route: 065
     Dates: start: 20211110, end: 20211126
  4. LEVOFLOXACIN [Suspect]
     Active Substance: LEVOFLOXACIN
     Indication: Tuberculosis
     Route: 065
     Dates: start: 20211110, end: 20211204
  5. CLOFAZIMINE [Suspect]
     Active Substance: CLOFAZIMINE
     Indication: Tuberculosis
     Route: 065
     Dates: start: 20211112, end: 20211204
  6. CYCLOSERINE [Suspect]
     Active Substance: CYCLOSERINE
     Indication: Tuberculosis
     Route: 065
     Dates: start: 20211110, end: 20211204
  7. PYRAZINAMIDE [Suspect]
     Active Substance: PYRAZINAMIDE
     Indication: Tuberculosis
     Route: 065
     Dates: start: 20211110, end: 20211204
  8. PYRIDOXINE [Concomitant]
     Active Substance: PYRIDOXINE
     Indication: Prophylaxis
     Route: 065
     Dates: start: 20211110
  9. DOLUTEGRAVIR;LAMIVUDINE;TENOFOVIR [Concomitant]
     Route: 065
     Dates: start: 20211126
  10. COTRIMOXAZOLE [Concomitant]
     Active Substance: SULFAMETHOXAZOLE\TRIMETHOPRIM
     Indication: Toxoplasmosis
     Dosage: 2.5 TABS
     Route: 065
     Dates: start: 20211203
  11. ORS [GLUCOSE;POTASSIUM CHLORIDE;SODIUM CHLORIDE;SODIUM CITRATE DIHYDRA [Concomitant]
     Indication: Fluid replacement
     Route: 065
     Dates: start: 20211203
  12. FEFOL [FERROUS SULFATE EXSICCATED;FOLIC ACID] [Concomitant]
     Indication: Anaemia
     Route: 065
     Dates: start: 20211026

REACTIONS (6)
  - HIV infection [Fatal]
  - Disseminated tuberculosis [Fatal]
  - Dizziness [Unknown]
  - Asthenia [Unknown]
  - Dysarthria [Unknown]
  - Diarrhoea [Unknown]

NARRATIVE: CASE EVENT DATE: 20211203
